FAERS Safety Report 22215866 (Version 1)
Quarter: 2023Q2

REPORT INFORMATION
  Report Type: Spontaneous
  Country: US (occurrence: US)
  Receive Date: 20230417
  Receipt Date: 20230417
  Transmission Date: 20230721
  Serious: No
  Sender: FDA-Public Use
  Company Number: US-JNJFOC-20230418373

PATIENT
  Sex: Female
  Weight: 44 kg

DRUGS (1)
  1. RYBREVANT [Suspect]
     Active Substance: AMIVANTAMAB-VMJW
     Indication: Non-small cell lung cancer
     Route: 042
     Dates: start: 20230406

REACTIONS (6)
  - Rash [Recovered/Resolved]
  - Chest pain [Unknown]
  - Back pain [Unknown]
  - Hypotension [Unknown]
  - Arthralgia [Unknown]
  - Throat irritation [Unknown]

NARRATIVE: CASE EVENT DATE: 20230406
